FAERS Safety Report 5507537-2 (Version None)
Quarter: 2007Q4

REPORT INFORMATION
  Report Type: 
  Country: None (occurrence: None)
  Receive Date: 20071105
  Receipt Date: 20071105
  Transmission Date: 20080405
  Serious: No
  Sender: FDA-Public Use
  Company Number: None

PATIENT
  Sex: Female
  Weight: 80.7403 kg

DRUGS (2)
  1. RILUZOLE [Suspect]
     Indication: BIPOLAR DISORDER
     Dosage: 50 MG TWICE DAILY PO
     Route: 048
  2. RILUZOLE [Suspect]
     Indication: DEPRESSION
     Dosage: 50 MG TWICE DAILY PO
     Route: 048

REACTIONS (1)
  - TARDIVE DYSKINESIA [None]
